FAERS Safety Report 6913396-3 (Version None)
Quarter: 2010Q3

REPORT INFORMATION
  Report Type: 
  Country: None (occurrence: None)
  Receive Date: 20100809
  Receipt Date: 20100803
  Transmission Date: 20110219
  Serious: Yes (Other)
  Sender: FDA-Public Use
  Company Number: JP-EISAI INC.-E2020-07066-SPO-JP

PATIENT
  Age: 86 Year
  Sex: Male

DRUGS (6)
  1. ARICEPT [Suspect]
     Indication: DEMENTIA ALZHEIMER'S TYPE
     Route: 048
     Dates: start: 20100608, end: 20100628
  2. ARICEPT [Suspect]
     Route: 048
     Dates: start: 20100629, end: 20100713
  3. OLMESARTAN MEDOXOMIL [Concomitant]
     Indication: HYPERTENSION
     Dosage: 20 MG DAILY
  4. INDERAL [Concomitant]
     Indication: HYPERTENSION
     Dosage: 10 MG DAILY
  5. FLUITRAN [Concomitant]
     Indication: ARRHYTHMIA
     Dosage: 2 MG DAILY
  6. LISPINE [Concomitant]

REACTIONS (2)
  - NEPHRITIS [None]
  - POLLAKIURIA [None]
